FAERS Safety Report 7586417-5 (Version None)
Quarter: 2011Q3

REPORT INFORMATION
  Report Type: 
  Country: None (occurrence: None)
  Receive Date: 20110701
  Receipt Date: 20110623
  Transmission Date: 20111222
  Serious: Yes (Other)
  Sender: FDA-Public Use
  Company Number: B0710144A

PATIENT
  Sex: Female
  Weight: 22.8 kg

DRUGS (19)
  1. CANDESARTAN CILEXETIL [Concomitant]
     Route: 048
     Dates: start: 20080322, end: 20080329
  2. MUCOSOLVAN [Concomitant]
     Route: 048
     Dates: start: 20080319, end: 20080331
  3. SEISHOKU [Concomitant]
     Route: 042
     Dates: start: 20080319, end: 20080416
  4. FULCALIQ [Concomitant]
     Route: 042
     Dates: start: 20080319, end: 20080416
  5. BUSULFAN [Concomitant]
     Indication: ALLOGENIC BONE MARROW TRANSPLANTATION THERAPY
     Dosage: 1.1MGK PER DAY
     Route: 042
     Dates: start: 20080319, end: 20080323
  6. ELEMENMIC [Concomitant]
     Route: 042
     Dates: start: 20080319, end: 20080416
  7. SEROTONE [Concomitant]
     Route: 042
     Dates: start: 20080325, end: 20080326
  8. TACROLIMUS [Suspect]
     Indication: IMMUNOSUPPRESSION
     Dosage: .026MGK PER DAY
     Route: 065
     Dates: start: 20080326
  9. ZOVIRAX [Concomitant]
     Route: 042
     Dates: start: 20080324, end: 20080414
  10. PREDNISOLONE [Suspect]
     Indication: IMMUNOSUPPRESSION
     Dosage: 2MGK PER DAY
     Route: 065
     Dates: start: 20080404
  11. METHOTREXATE [Concomitant]
     Indication: IMMUNOSUPPRESSION
     Dosage: 15MGM2 PER DAY
     Route: 065
     Dates: start: 20080328, end: 20080407
  12. PHENYTOIN [Concomitant]
     Route: 048
     Dates: start: 20080319, end: 20080324
  13. NEO-MINOPHAGEN-C [Concomitant]
     Route: 042
     Dates: start: 20080319, end: 20080416
  14. ALKERAN [Suspect]
     Indication: ALLOGENIC BONE MARROW TRANSPLANTATION THERAPY
     Dosage: 90MGM2 PER DAY
     Route: 042
     Dates: start: 20080324, end: 20080325
  15. HEPARIN [Concomitant]
     Route: 042
     Dates: start: 20080319, end: 20080416
  16. RAMELTEON [Concomitant]
     Route: 042
     Dates: start: 20080319, end: 20080326
  17. FIRSTCIN [Concomitant]
     Route: 042
     Dates: start: 20080319, end: 20080402
  18. CELLCEPT [Concomitant]
     Indication: IMMUNOSUPPRESSION
     Dosage: 20MGK PER DAY
     Route: 048
     Dates: start: 20080626
  19. URSO 250 [Concomitant]
     Route: 048
     Dates: start: 20080322, end: 20080630

REACTIONS (1)
  - ENCEPHALITIS VIRAL [None]
